FAERS Safety Report 8607281-9 (Version None)
Quarter: 2012Q3

REPORT INFORMATION
  Report Type: 
  Country: None (occurrence: None)
  Receive Date: 20120807
  Receipt Date: 20120727
  Transmission Date: 20120928
  Serious: Yes (Hospitalization)
  Sender: FDA-Public Use
  Company Number: AUR-APL-2012-02959

PATIENT
  Age: 51 Year
  Sex: Male

DRUGS (4)
  1. GLIMEPIRIDE [Concomitant]
  2. METFFORMIN HYDROCHLORIDE [Concomitant]
  3. SIMVASTATIN [Concomitant]
  4. MIRTAZAPINE [Suspect]
     Indication: DEPRESSION
     Dosage: (30 MG),ORAL
     Route: 048
     Dates: end: 20120519

REACTIONS (7)
  - CONFUSIONAL STATE [None]
  - CONVULSION [None]
  - ENCEPHALITIS [None]
  - AGITATION [None]
  - BLOOD LACTIC ACID INCREASED [None]
  - ENCEPHALOPATHY [None]
  - NEUROLEPTIC MALIGNANT SYNDROME [None]
